FAERS Safety Report 18355912 (Version 5)
Quarter: 2020Q4

REPORT INFORMATION
  Report Type: Report from Study
  Country: US (occurrence: US)
  Receive Date: 20201007
  Receipt Date: 20201217
  Transmission Date: 20210114
  Serious: Yes (Other)
  Sender: FDA-Public Use
  Company Number: NVSC2020US265478

PATIENT
  Age: 53 Year
  Sex: Female

DRUGS (1)
  1. COSENTYX [Suspect]
     Active Substance: SECUKINUMAB
     Indication: ANKYLOSING SPONDYLITIS
     Dosage: 150 MG, QW
     Route: 058
     Dates: start: 202009

REACTIONS (9)
  - Rotator cuff syndrome [Unknown]
  - Spinal disorder [Unknown]
  - Arthralgia [Unknown]
  - Skin lesion [Unknown]
  - Pigmentation disorder [Unknown]
  - Skin cancer [Unknown]
  - Pain [Unknown]
  - Rash [Unknown]
  - Dry eye [Unknown]

NARRATIVE: CASE EVENT DATE: 202009
